FAERS Safety Report 9553818 (Version 1)
Quarter: 2013Q3

REPORT INFORMATION
  Report Type: Spontaneous
  Country: US (occurrence: None)
  Receive Date: 20130916
  Receipt Date: 20130916
  Transmission Date: 20140515
  Serious: Yes (Other)
  Sender: FDA-Public Use
  Company Number: JPI-P-022613

PATIENT
  Age: 57 Year
  Sex: Female

DRUGS (4)
  1. XYREM [Suspect]
     Indication: CATAPLEXY
     Route: 048
     Dates: start: 20080902
  2. VENLAFAXINE [Suspect]
     Indication: CATAPLEXY
     Dates: start: 2007
  3. SERTRALINE [Suspect]
     Indication: DEPRESSION
     Dates: start: 2011
  4. LORAZEPAM [Concomitant]

REACTIONS (4)
  - Suicidal ideation [None]
  - Anxiety [None]
  - Condition aggravated [None]
  - Depression [None]
